FAERS Safety Report 6085462-9 (Version None)
Quarter: 2009Q1

REPORT INFORMATION
  Report Type: 
  Country: None (occurrence: None)
  Receive Date: 20090220
  Receipt Date: 20090114
  Transmission Date: 20090719
  Serious: Yes (Hospitalization)
  Sender: FDA-Public Use
  Company Number: US-JNJFOC-20090103609

PATIENT
  Age: 91 Year
  Sex: Male

DRUGS (11)
  1. LEVAQUIN [Suspect]
     Indication: BRONCHITIS
     Dosage: SEVEN DAY COURSE
     Route: 048
  2. METOPROLOL TARTRATE [Concomitant]
     Route: 065
  3. ISOSORBIDE MONONITRATE [Concomitant]
     Route: 065
  4. HYDROCHOLOROTHIAZIDE/TRIAMTERENE [Concomitant]
     Dosage: 25 MG/37.5 MG
     Route: 065
  5. SPIRONOLACTONE/HYDROCHLOROTHIAZIDE [Concomitant]
     Indication: HYPERTENSION
     Dosage: 25 MG/25 MG
     Route: 065
  6. QUINAPRIL [Concomitant]
     Indication: HYPERTENSION
     Route: 065
  7. CELECOXIB [Concomitant]
     Route: 065
  8. GLUCOSAMINE [Concomitant]
     Route: 065
  9. SERTRALINE [Concomitant]
     Route: 065
  10. OMEPRAZOLE [Concomitant]
     Route: 065
  11. ACETAMINOPHEN [Concomitant]
     Indication: ARTHRITIS
     Dosage: 1000 MG EVERY SIX HOURS AS NEEDED
     Route: 065

REACTIONS (1)
  - TENDON RUPTURE [None]
